FAERS Safety Report 6717983 (Version 7)
Quarter: 2014Q4

REPORT INFORMATION
  Report Type: Spontaneous
  Country: JP (occurrence: JP)
  Receive Date: 20080804
  Receipt Date: 20141128
  Transmission Date: 20150529
  Serious: Yes (Hospitalization, Other)
  Sender: FDA-Public Use
  Company Number: PHHY2008JP11856

PATIENT
  Sex: Male

DRUGS (8)
  1. CICLOSPORIN [Suspect]
     Active Substance: CYCLOSPORINE
     Dosage: 300 MG, QD
     Route: 048
     Dates: start: 20031002, end: 20050124
  2. PREDONINE [Concomitant]
     Active Substance: PREDNISOLONE\PREDNISOLONE ACETATE\PREDNISOLONE SODIUM SUCCINATE
     Indication: IMMUNOSUPPRESSION
  3. EVEROLIMUS [Suspect]
     Active Substance: EVEROLIMUS
     Indication: RENAL TRANSPLANT
     Route: 048
     Dates: start: 200707
  4. CICLOSPORIN [Suspect]
     Active Substance: CYCLOSPORINE
     Indication: HEART TRANSPLANT
     Dosage: 400 MG, QD
     Route: 048
     Dates: start: 19990312, end: 20000120
  5. CELLCEPT [Concomitant]
     Active Substance: MYCOPHENOLATE MOFETIL\MYCOPHENOLATE MOFETIL HYDROCHLORIDE
     Indication: IMMUNOSUPPRESSION
  6. CELLCEPT [Concomitant]
     Active Substance: MYCOPHENOLATE MOFETIL\MYCOPHENOLATE MOFETIL HYDROCHLORIDE
     Indication: HEART TRANSPLANT
     Route: 065
  7. CICLOSPORIN [Suspect]
     Active Substance: CYCLOSPORINE
     Indication: IMMUNOSUPPRESSION
     Dosage: 350 MG, QD
     Route: 048
     Dates: start: 20000121, end: 20031001
  8. PREDONINE [Concomitant]
     Active Substance: PREDNISOLONE\PREDNISOLONE ACETATE\PREDNISOLONE SODIUM SUCCINATE
     Indication: HEART TRANSPLANT
     Route: 065

REACTIONS (10)
  - VIIth nerve paralysis [Recovered/Resolved]
  - Coronary artery disease [Unknown]
  - Complications of transplanted heart [Unknown]
  - Nephropathy toxic [Recovering/Resolving]
  - Drug ineffective [Unknown]
  - Renal impairment [Recovering/Resolving]
  - Renal failure [Recovering/Resolving]
  - Transplant rejection [Recovered/Resolved]
  - Blood creatinine increased [Recovering/Resolving]
  - Melaena [Recovered/Resolved]
